FAERS Safety Report 10217634 (Version 1)
Quarter: 2014Q2

REPORT INFORMATION
  Report Type: Report from Study
  Country: BR (occurrence: BR)
  Receive Date: 20140604
  Receipt Date: 20140604
  Transmission Date: 20141212
  Serious: Yes (Other)
  Sender: FDA-Public Use
  Company Number: PHHY2014BR068452

PATIENT
  Sex: Female

DRUGS (2)
  1. ACLASTA [Suspect]
     Indication: OSTEOPOROSIS
     Dosage: 1 APPLICATION A  YEAR
     Route: 042
     Dates: start: 2012
  2. ACLASTA [Suspect]
     Dosage: 1 APPLICATION A  YEAR
     Route: 042
     Dates: start: 2013

REACTIONS (3)
  - Lower limb fracture [Unknown]
  - Tremor [Unknown]
  - Malaise [Unknown]
